FAERS Safety Report 6386814-X (Version None)
Quarter: 2009Q4

REPORT INFORMATION
  Report Type: 
  Country: None (occurrence: None)
  Receive Date: 20091002
  Receipt Date: 20090929
  Transmission Date: 20100525
  Serious: Yes (Other)
  Sender: FDA-Public Use
  Company Number: B0595487A

PATIENT
  Age: 75 Year
  Sex: Male

DRUGS (9)
  1. CEFUROXIME [Suspect]
     Indication: PNEUMONIA
  2. EPILIM [Suspect]
     Indication: EPILEPSY
     Dosage: 1000MG PER DAY
     Route: 065
  3. CLOPIDOGREL [Concomitant]
     Route: 048
  4. RAMIPRIL [Concomitant]
     Route: 065
  5. ADALAT [Concomitant]
     Route: 065
  6. RANITIDINE [Concomitant]
     Route: 065
  7. CARDICOR [Concomitant]
     Route: 065
  8. CRESTOR [Concomitant]
     Route: 065
  9. ALENDRONIC ACID [Concomitant]
     Route: 065

REACTIONS (2)
  - CONVULSION [None]
  - DRUG INTERACTION [None]
